FAERS Safety Report 6138997-4 (Version None)
Quarter: 2009Q1

REPORT INFORMATION
  Report Type: 
  Country: None (occurrence: None)
  Receive Date: 20090327
  Receipt Date: 20090320
  Transmission Date: 20090719
  Serious: Yes (Death)
  Sender: FDA-Public Use
  Company Number: 2008-188265-NL

PATIENT
  Age: 46 Year
  Sex: Female

DRUGS (2)
  1. ETONOGESTREL [Suspect]
     Indication: CONTRACEPTION
     Dosage: DF
     Dates: start: 20041201, end: 20070901
  2. ETONOGESTREL [Suspect]
     Indication: CONTRACEPTION
     Dosage: DF
     Dates: start: 20070901

REACTIONS (1)
  - BILE DUCT CANCER [None]
